FAERS Safety Report 13617811 (Version 1)
Quarter: 2017Q2

REPORT INFORMATION
  Report Type: Spontaneous
  Country: US (occurrence: US)
  Receive Date: 20170606
  Receipt Date: 20170606
  Transmission Date: 20170830
  Serious: Yes (Other)
  Sender: FDA-Public Use
  Company Number: US-SMITH AND NEPHEW, INC-2017SMT00400

PATIENT
  Age: 52 Year
  Sex: Male
  Weight: 76.19 kg

DRUGS (6)
  1. MARINOL [Concomitant]
     Active Substance: DRONABINOL
     Indication: APPETITE DISORDER
  2. MARINOL [Concomitant]
     Active Substance: DRONABINOL
     Indication: NAUSEA
  3. XANAX [Concomitant]
     Active Substance: ALPRAZOLAM
     Indication: ANXIETY
  4. REGRANEX [Suspect]
     Active Substance: BECAPLERMIN
     Dosage: UNK UNK, ONCE
     Route: 061
     Dates: start: 20170524, end: 20170525
  5. REGRANEX [Suspect]
     Active Substance: BECAPLERMIN
     Indication: WOUND
     Dosage: UNK
     Route: 061
  6. OXYCODONE [Concomitant]
     Active Substance: OXYCODONE

REACTIONS (3)
  - Off label use [Recovered/Resolved]
  - Surgery [Unknown]
  - Expired product administered [Recovered/Resolved]

NARRATIVE: CASE EVENT DATE: 20170519
